FAERS Safety Report 4920261-X (Version None)
Quarter: 2006Q1

REPORT INFORMATION
  Report Type: 
  Country: None (occurrence: None)
  Receive Date: 20060223
  Receipt Date: 20051208
  Transmission Date: 20060701
  Serious: Yes (Death, Hospitalization, Disabling, Other)
  Sender: FDA-Public Use
  Company Number: US-GLAXOSMITHKLINE-A0585171A

PATIENT
  Age: 84 Year
  Sex: Female
  Weight: 55.9 kg

DRUGS (1)
  1. AVANDIA [Suspect]
     Indication: DIABETES MELLITUS
     Dosage: 8MG TWICE PER DAY
     Route: 048
     Dates: start: 20020101, end: 20030701

REACTIONS (4)
  - BLOOD CREATININE INCREASED [None]
  - COGNITIVE DISORDER [None]
  - HYPOGLYCAEMIA [None]
  - RENAL FAILURE [None]
